FAERS Safety Report 9625544 (Version 1)
Quarter: 2013Q4

REPORT INFORMATION
  Report Type: Spontaneous
  Country: US (occurrence: None)
  Receive Date: 20131015
  Receipt Date: 20131015
  Transmission Date: 20140711
  Serious: Yes (Life-Threatening, Hospitalization)
  Sender: FDA-Public Use
  Company Number: None

PATIENT
  Age: 59 Year
  Sex: Male
  Weight: 107.5 kg

DRUGS (4)
  1. BENICAR HCT [Suspect]
     Indication: HYPERTENSION
     Route: 048
     Dates: start: 20120829, end: 20130529
  2. PANTOPRAZOLE [Concomitant]
  3. PAROXETINE [Concomitant]
  4. ALPRAZOLAM [Concomitant]

REACTIONS (7)
  - Diarrhoea [None]
  - Nausea [None]
  - Vomiting [None]
  - Malnutrition [None]
  - Electrolyte imbalance [None]
  - Gastrointestinal disorder [None]
  - Malabsorption [None]
